FAERS Safety Report 8312425-2 (Version None)
Quarter: 2012Q2

REPORT INFORMATION
  Report Type: 
  Country: None (occurrence: None)
  Receive Date: 20120425
  Receipt Date: 20120419
  Transmission Date: 20120825
  Serious: Yes (Other)
  Sender: FDA-Public Use
  Company Number: ES-TEVA-334396USA

PATIENT
  Sex: Female

DRUGS (11)
  1. ALLOPURINOL [Concomitant]
     Dates: start: 20120411, end: 20120414
  2. LORMETAZEPAM [Concomitant]
     Dates: start: 20120411
  3. ETOPOSIDE [Suspect]
     Indication: DIFFUSE LARGE B-CELL LYMPHOMA
  4. TREANDA [Suspect]
     Indication: DIFFUSE LARGE B-CELL LYMPHOMA
     Route: 042
     Dates: start: 20120412
  5. GLUTAMIC ACID [Concomitant]
     Dates: start: 20120411
  6. MELPHALAN HYDROCHLORIDE [Concomitant]
  7. METFORMIN [Concomitant]
     Dates: end: 20120415
  8. CYTARABINE [Concomitant]
  9. ITRACONAZOLE [Concomitant]
     Dates: start: 20120411
  10. HEPARIN-FRACTION, SODIUM SALT [Concomitant]
     Dates: start: 20120411
  11. ONDANSETRON [Concomitant]
     Dates: start: 20120412

REACTIONS (1)
  - RENAL FAILURE ACUTE [None]
